FAERS Safety Report 6483248-4 (Version None)
Quarter: 2009Q4

REPORT INFORMATION
  Report Type: 
  Country: None (occurrence: None)
  Receive Date: 20091208
  Receipt Date: 20091208
  Transmission Date: 20100525
  Serious: Yes (Hospitalization)
  Sender: FDA-Public Use
  Company Number: None

PATIENT
  Sex: Male
  Weight: 100 kg

DRUGS (2)
  1. CARBOPLATIN [Suspect]
     Dosage: 875 MG
     Dates: end: 20091027
  2. ETOPOSIDE [Suspect]
     Dosage: 630 MG
     Dates: end: 20091029

REACTIONS (1)
  - ATRIAL FIBRILLATION [None]
